FAERS Safety Report 9376965 (Version 4)
Quarter: 2014Q2

REPORT INFORMATION
  Report Type: Spontaneous
  Country: US (occurrence: US)
  Receive Date: 20130701
  Receipt Date: 20140501
  Transmission Date: 20141212
  Serious: Yes (Other)
  Sender: FDA-Public Use
  Company Number: US-ASTRAZENECA-2013SE48211

PATIENT
  Sex: Female

DRUGS (3)
  1. PLACEBO MEDI8968 [Suspect]
     Indication: CHRONIC OBSTRUCTIVE PULMONARY DISEASE
     Dosage: ONCE/SINGLE ADMINISTARTION - LOADING DOSE
     Route: 042
     Dates: start: 20120626, end: 20120626
  2. PLACEBO MEDI8968 [Suspect]
     Indication: CHRONIC OBSTRUCTIVE PULMONARY DISEASE
     Dosage: EVERY 4 WEEKS FOR 52 WEEKS
     Route: 058
  3. SYMBICORT [Suspect]
     Indication: CHRONIC OBSTRUCTIVE PULMONARY DISEASE
     Route: 055
     Dates: start: 20120611, end: 20121103

REACTIONS (1)
  - Laryngeal papilloma [Recovered/Resolved]
